FAERS Safety Report 17061994 (Version 2)
Quarter: 2019Q4

REPORT INFORMATION
  Report Type: Report from Study
  Country: None (occurrence: AU)
  Receive Date: 20191121
  Receipt Date: 20191127
  Transmission Date: 20200122
  Serious: Yes (Other)
  Sender: FDA-Public Use
  Company Number: AU-ABBVIE-12P-008-0950094-00

PATIENT
  Sex: Male

DRUGS (2)
  1. LUCRIN DEPOT [Suspect]
     Active Substance: LEUPROLIDE ACETATE
     Indication: PROSTATE CANCER
     Route: 030
     Dates: start: 201012, end: 201110
  2. LUCRIN DEPOT [Suspect]
     Active Substance: LEUPROLIDE ACETATE
     Route: 030

REACTIONS (8)
  - Neoplasm skin [Unknown]
  - Lymphoma [Not Recovered/Not Resolved]
  - Breast enlargement [Unknown]
  - Neoplasm skin [Recovered/Resolved]
  - Nipple pain [Unknown]
  - Breast mass [Unknown]
  - Breast pain [Unknown]
  - Prostatectomy [Recovered/Resolved]
